FAERS Safety Report 8040428-4 (Version None)
Quarter: 2012Q1

REPORT INFORMATION
  Report Type: 
  Country: None (occurrence: None)
  Receive Date: 20120111
  Receipt Date: 20111229
  Transmission Date: 20120608
  Serious: No
  Sender: FDA-Public Use
  Company Number: US-AMGEN-USASP2011069571

PATIENT
  Age: 51 Year
  Sex: Male

DRUGS (2)
  1. ENBREL [Suspect]
     Indication: RHEUMATOID ARTHRITIS
     Dosage: 25 MG, 2 TIMES/WK
     Dates: start: 19991101
  2. METHOTREXATE [Concomitant]
     Dosage: 1 MG, UNK
     Dates: start: 19990101

REACTIONS (2)
  - INJECTION SITE HAEMATOMA [None]
  - BLOOD POTASSIUM DECREASED [None]
